FAERS Safety Report 15486623 (Version 1)
Quarter: 2018Q4

REPORT INFORMATION
  Report Type: Spontaneous
  Country: FR (occurrence: FR)
  Receive Date: 20181011
  Receipt Date: 20181011
  Transmission Date: 20190205
  Serious: Yes (Other)
  Sender: FDA-Public Use
  Company Number: FR-AUROBINDO-AUR-APL-2018-049034

PATIENT
  Age: 75 Year
  Sex: Female

DRUGS (3)
  1. AMOXICILLIN ARROW FILM-COATED DISPERSIBLE TABLET 1G [Suspect]
     Active Substance: AMOXICILLIN
     Indication: RESPIRATORY TRACT INFECTION
     Dosage: 3 GRAM, ONCE A DAY
     Route: 048
     Dates: start: 20180907, end: 20180914
  2. TAVANIC [Concomitant]
     Active Substance: LEVOFLOXACIN
     Indication: RESPIRATORY TRACT INFECTION
     Dosage: UNK
     Route: 048
     Dates: start: 20180907, end: 20180907
  3. RIFADINE                           /00146901/ [Suspect]
     Active Substance: RIFAMPIN
     Indication: RESPIRATORY TRACT INFECTION
     Dosage: UNK
     Route: 048
     Dates: start: 20180907, end: 20180914

REACTIONS (3)
  - Reaction to excipient [Not Recovered/Not Resolved]
  - Pruritus [Not Recovered/Not Resolved]
  - Urticaria [Not Recovered/Not Resolved]

NARRATIVE: CASE EVENT DATE: 201809
